FAERS Safety Report 8054905-3 (Version None)
Quarter: 2011Q4

REPORT INFORMATION
  Report Type: 
  Country: None (occurrence: None)
  Receive Date: 20111216
  Receipt Date: 20111027
  Transmission Date: 20120403
  Serious: Yes (Hospitalization)
  Sender: FDA-Public Use
  Company Number: 304017USA

PATIENT
  Age: 34 Year
  Sex: Female
  Weight: 48.9885 kg

DRUGS (1)
  1. PARAGARD T 380A [Suspect]
     Indication: CONTRACEPTION
     Dosage: I.U.
     Dates: start: 20110831, end: 20110921

REACTIONS (5)
  - CHILLS [None]
  - BLISTER [None]
  - PELVIC INFLAMMATORY DISEASE [None]
  - PELVIC PAIN [None]
  - PYREXIA [None]
